FAERS Safety Report 23733773 (Version 1)
Quarter: 2024Q2

REPORT INFORMATION
  Report Type: Spontaneous
  Country: US (occurrence: US)
  Receive Date: 20240411
  Receipt Date: 20240411
  Transmission Date: 20240716
  Serious: No
  Sender: FDA-Public Use
  Company Number: US-CORCEPT THERAPEUTICS INC.-US-2023CRT001627

PATIENT
  Sex: Female

DRUGS (3)
  1. KORLYM [Suspect]
     Active Substance: MIFEPRISTONE
     Indication: Cushing^s syndrome
     Dosage: 600 MG, QD
     Route: 048
     Dates: start: 20230303
  2. OZEMPIC [Suspect]
     Active Substance: SEMAGLUTIDE
     Indication: Product used for unknown indication
     Dosage: UNK
     Route: 065
  3. INSULIN NOS [Concomitant]
     Active Substance: INSULIN NOS
     Indication: Product used for unknown indication

REACTIONS (10)
  - Impaired gastric emptying [Unknown]
  - Blood pressure decreased [Not Recovered/Not Resolved]
  - Fall [Unknown]
  - Ankle fracture [Unknown]
  - Glycosylated haemoglobin increased [Unknown]
  - Weight increased [Unknown]
  - Fatigue [Not Recovered/Not Resolved]
  - Constipation [Unknown]
  - Blood potassium decreased [Recovered/Resolved]
  - Insomnia [Unknown]

NARRATIVE: CASE EVENT DATE: 20230101
